FAERS Safety Report 17120116 (Version 5)
Quarter: 2020Q1

REPORT INFORMATION
  Report Type: Spontaneous
  Country: NZ (occurrence: NZ)
  Receive Date: 20191206
  Receipt Date: 20200320
  Transmission Date: 20200409
  Serious: Yes (Hospitalization, Disabling, Other)
  Sender: FDA-Public Use
  Company Number: NVSC2019NZ010396

PATIENT
  Age: 75 Year
  Sex: Male
  Weight: 86 kg

DRUGS (22)
  1. QUINAPRIL. [Concomitant]
     Active Substance: QUINAPRIL
     Indication: PRODUCT USED FOR UNKNOWN INDICATION
     Dosage: 5 MG, QD
     Route: 048
     Dates: start: 20160802
  2. EPREX [Concomitant]
     Active Substance: ERYTHROPOIETIN
     Indication: PRODUCT USED FOR UNKNOWN INDICATION
     Dosage: 3000 IU, Q2W
     Route: 058
     Dates: start: 20170929
  3. SPIRONOLACTONE. [Concomitant]
     Active Substance: SPIRONOLACTONE
     Indication: PRODUCT USED FOR UNKNOWN INDICATION
     Dosage: 25 MG, QD
     Route: 048
     Dates: start: 20170630, end: 20191011
  4. BINOCRIT 3000 IU - 10.000 IU [Suspect]
     Active Substance: ERYTHROPOIETIN
     Dosage: 8000 ML (12 SYRINGES, 10 USED)
     Route: 058
  5. ASPIRIN (E.C.) [Concomitant]
     Active Substance: ASPIRIN
     Indication: PRODUCT USED FOR UNKNOWN INDICATION
     Dosage: 100 MG, QD (MANE)
     Route: 048
     Dates: start: 20160802
  6. BENDROFLUAZIDE [Concomitant]
     Active Substance: BENDROFLUMETHIAZIDE
     Indication: PRODUCT USED FOR UNKNOWN INDICATION
     Dosage: 5 MG, QD (MANE)
     Route: 048
     Dates: start: 20170730
  7. FUROSEMIDE. [Concomitant]
     Active Substance: FUROSEMIDE
     Indication: PRODUCT USED FOR UNKNOWN INDICATION
     Dosage: 250 MG, PRN
     Route: 048
     Dates: start: 20180702
  8. SALBUTAMOL [Concomitant]
     Active Substance: ALBUTEROL
     Indication: PRODUCT USED FOR UNKNOWN INDICATION
     Dosage: 100 UG, PRN
     Route: 055
     Dates: start: 20180702
  9. OMEPRAZOLE. [Concomitant]
     Active Substance: OMEPRAZOLE
     Indication: PRODUCT USED FOR UNKNOWN INDICATION
     Dosage: 20 MG, PRN
     Route: 048
     Dates: start: 20160802
  10. BINOCRIT 3000 IU - 10.000 IU [Suspect]
     Active Substance: ERYTHROPOIETIN
     Dosage: 3000 IU, QW (STRENGTH: 3000 IU/ 0.3ML)
     Route: 058
     Dates: start: 20190819, end: 20190924
  11. BINOCRIT 3000 IU - 10.000 IU [Suspect]
     Active Substance: ERYTHROPOIETIN
     Dosage: 3000 OT
     Route: 058
  12. MAGNESIUM [Concomitant]
     Active Substance: MAGNESIUM
     Indication: PRODUCT USED FOR UNKNOWN INDICATION
     Dosage: 311 MG, QD
     Route: 065
  13. MYCOPHENOLATE MOFETIL. [Suspect]
     Active Substance: MYCOPHENOLATE MOFETIL
     Indication: FOCAL SEGMENTAL GLOMERULOSCLEROSIS
     Dosage: UNK, QD
     Route: 048
     Dates: start: 20161117, end: 20161122
  14. BINOCRIT 3000 IU - 10.000 IU [Suspect]
     Active Substance: ERYTHROPOIETIN
     Dosage: 3000 IU, QW (STRENGTH: 3000 IU/ 0.3ML)
     Route: 058
     Dates: start: 20190520
  15. ATORVASTATIN [Concomitant]
     Active Substance: ATORVASTATIN
     Indication: PRODUCT USED FOR UNKNOWN INDICATION
     Dosage: 40 MG, QD
     Route: 048
     Dates: start: 20190702
  16. DOXAZOSIN [Concomitant]
     Active Substance: DOXAZOSIN MESYLATE
     Indication: PRODUCT USED FOR UNKNOWN INDICATION
     Dosage: 2 MG, QD (NOCTE)
     Route: 048
     Dates: start: 20180702
  17. EPREX [Concomitant]
     Active Substance: ERYTHROPOIETIN
     Dosage: 3000 IU, Q2W
     Route: 058
     Dates: start: 20171220
  18. BINOCRIT 3000 IU - 10.000 IU [Suspect]
     Active Substance: ERYTHROPOIETIN
     Indication: NEPHROGENIC ANAEMIA
     Dosage: 3000 IU, QW (STRENGTH: 3000 IU/ 0.3ML)
     Route: 058
     Dates: start: 20190401
  19. BINOCRIT 3000 IU - 10.000 IU [Suspect]
     Active Substance: ERYTHROPOIETIN
     Dosage: 8000 ML (12 SYRINGES IN TOTAL, FOUR USED)
     Route: 058
     Dates: start: 20190924, end: 20191008
  20. BINOCRIT 3000 IU - 10.000 IU [Suspect]
     Active Substance: ERYTHROPOIETIN
     Dosage: UNK
     Route: 065
  21. METOPROLOL. [Concomitant]
     Active Substance: METOPROLOL
     Indication: PRODUCT USED FOR UNKNOWN INDICATION
     Dosage: 23.75 MG, QD
     Route: 048
     Dates: start: 20180702
  22. TICAGRELOR. [Concomitant]
     Active Substance: TICAGRELOR
     Indication: PRODUCT USED FOR UNKNOWN INDICATION
     Dosage: 90 MG, BID
     Route: 048
     Dates: end: 20190626

REACTIONS (7)
  - Anaemia [Unknown]
  - Otitis media chronic [Recovering/Resolving]
  - Malnutrition [Recovered/Resolved]
  - Aplasia pure red cell [Recovering/Resolving]
  - Blood count abnormal [Not Recovered/Not Resolved]
  - Haemoglobin decreased [Unknown]
  - Hypoparathyroidism secondary [Recovering/Resolving]

NARRATIVE: CASE EVENT DATE: 20190923
